FAERS Safety Report 6885227-1 (Version None)
Quarter: 2010Q3

REPORT INFORMATION
  Report Type: 
  Country: None (occurrence: None)
  Receive Date: 20100729
  Receipt Date: 20100729
  Transmission Date: 20110219
  Serious: No
  Sender: FDA-Public Use
  Company Number: None

PATIENT
  Sex: Male
  Weight: 72.5755 kg

DRUGS (10)
  1. VANCOMYCIN [Suspect]
     Indication: INTERVERTEBRAL DISCITIS
     Dosage: 450MG Q12H IV DRIP
     Route: 041
     Dates: start: 20100723
  2. SODIUM CHLORIDE [Concomitant]
  3. HEPARIN LOCK FLUSH [Concomitant]
  4. CIPROFLOXACIN [Concomitant]
  5. LORTAB [Concomitant]
  6. PRAVASTATIN [Concomitant]
  7. INDERAL [Concomitant]
  8. NORVASC [Concomitant]
  9. TRICOR [Concomitant]
  10. ASPIRIN [Concomitant]

REACTIONS (2)
  - ERYTHEMA [None]
  - RASH ERYTHEMATOUS [None]
